FAERS Safety Report 7120428-9 (Version None)
Quarter: 2010Q4

REPORT INFORMATION
  Report Type: 
  Country: None (occurrence: None)
  Receive Date: 20101124
  Receipt Date: 20101115
  Transmission Date: 20110411
  Serious: No
  Sender: FDA-Public Use
  Company Number: US-BIOGENIDEC-2010BI040437

PATIENT
  Sex: Female

DRUGS (2)
  1. TYSABRI [Suspect]
     Indication: MULTIPLE SCLEROSIS
     Route: 042
     Dates: start: 20071127, end: 20091001
  2. TYSABRI [Suspect]
     Route: 042
     Dates: start: 20100324, end: 20101114

REACTIONS (3)
  - JC VIRUS TEST POSITIVE [None]
  - MYALGIA [None]
  - NASOPHARYNGITIS [None]
